FAERS Safety Report 5527524-8 (Version None)
Quarter: 2007Q4

REPORT INFORMATION
  Report Type: 
  Country: None (occurrence: None)
  Receive Date: 20071123
  Receipt Date: 20071107
  Transmission Date: 20080405
  Serious: Yes (Hospitalization)
  Sender: FDA-Public Use
  Company Number: DSA_30913_2007

PATIENT
  Age: 72 Year
  Sex: Male

DRUGS (7)
  1. DILTIAZEM HCL [Suspect]
     Indication: DRUG USE FOR UNKNOWN INDICATION
     Dosage: (60 MG QD ORAL)
     Route: 048
     Dates: start: 20070920, end: 20071017
  2. RIFADINE /00146901/ (RIFADINE - RIFAMPICIN) [Suspect]
     Indication: BACTERIAL INFECTION
     Dosage: (800 MG QD ORAL)
     Route: 048
     Dates: start: 20070904, end: 20071016
  3. RIMIFON (RIMIFON - ISONIAZID) 150 MG (NOT SPECIFIED) [Suspect]
     Indication: BACTERIAL INFECTION
     Dosage: (150 MG BID ORAL)
     Route: 048
     Dates: start: 20070904, end: 20071016
  4. MOXIFLOXACIN HYDROCHLORIDE (MOXIFLOXACIN HYDROCHLORIDE) 400 MG [Suspect]
     Indication: BACTERIAL INFECTION
     Dosage: (400 MG QD ORAL)
     Route: 048
     Dates: start: 20070907, end: 20071014
  5. BUMETANIDE [Suspect]
     Indication: DRUG USE FOR UNKNOWN INDICATION
     Dosage: (5 MG QID ORAL)
     Route: 048
     Dates: start: 20070830
  6. INSULIN [Concomitant]
  7. ASPEGIC 325 [Concomitant]

REACTIONS (3)
  - CUTANEOUS VASCULITIS [None]
  - PATHOGEN RESISTANCE [None]
  - TOXIC SKIN ERUPTION [None]
